FAERS Safety Report 13183960 (Version 2)
Quarter: 2018Q4

REPORT INFORMATION
  Report Type: Report from Study
  Country: US (occurrence: US)
  Receive Date: 20170203
  Receipt Date: 20181214
  Transmission Date: 20190204
  Serious: Yes (Hospitalization, Other)
  Sender: FDA-Public Use
  Company Number: US-SHIRE-US201701902

PATIENT
  Age: 10 Year
  Sex: Male

DRUGS (2)
  1. IDURSULFASE [Suspect]
     Active Substance: IDURSULFASE
     Dosage: UNK, 1X/WEEK
     Route: 041
     Dates: start: 20090413
  2. IDURSULFASE [Suspect]
     Active Substance: IDURSULFASE
     Indication: MUCOPOLYSACCHARIDOSIS II
     Dosage: 0.5 MG/KG, 1X/WEEK
     Route: 041
     Dates: start: 20100616

REACTIONS (3)
  - Seizure [Recovered/Resolved]
  - Vascular device infection [Recovered/Resolved]
  - Pseudomonal bacteraemia [Recovered/Resolved]

NARRATIVE: CASE EVENT DATE: 20130518
